FAERS Safety Report 10230438 (Version 2)
Quarter: 2014Q2

REPORT INFORMATION
  Report Type: Spontaneous
  Country: US (occurrence: US)
  Receive Date: 20140611
  Receipt Date: 20140611
  Transmission Date: 20141212
  Serious: No
  Sender: FDA-Public Use
  Company Number: US-INCYTE CORPORATION-2014IN000518

PATIENT
  Age: 70 Year
  Sex: Female

DRUGS (3)
  1. JAKAFI [Suspect]
     Indication: MYELOFIBROSIS
     Dosage: 5 MG, BID
     Route: 048
     Dates: start: 20140113
  2. JAKAFI [Suspect]
     Dosage: 15 MG, BID
     Route: 048
     Dates: end: 20140218
  3. JAKAFI [Suspect]
     Dosage: 5 MG, BID
     Route: 048
     Dates: start: 20140218

REACTIONS (4)
  - Hypokalaemia [Unknown]
  - Night sweats [Unknown]
  - Pruritus [Unknown]
  - Platelet count decreased [Unknown]
